FAERS Safety Report 22625254 (Version 13)
Quarter: 2024Q2

REPORT INFORMATION
  Report Type: Spontaneous
  Country: US (occurrence: US)
  Receive Date: 20230621
  Receipt Date: 20240628
  Transmission Date: 20240716
  Serious: Yes (Other)
  Sender: FDA-Public Use
  Company Number: US-PFIZER INC-PV202300106274

PATIENT
  Age: 75 Year
  Sex: Female
  Weight: 57.143 kg

DRUGS (8)
  1. IBRANCE [Suspect]
     Active Substance: PALBOCICLIB
     Indication: Breast cancer stage IV
     Dosage: ONCE DAILY FOR 3 WEEKS, OFF FOR 1 WEEK/ 125 MG PO DAILY
     Route: 048
     Dates: start: 2020, end: 20240507
  2. IBRANCE [Suspect]
     Active Substance: PALBOCICLIB
     Dosage: 100 MG
     Route: 048
     Dates: start: 20240507
  3. LETROZOLE [Concomitant]
     Active Substance: LETROZOLE
     Indication: Breast cancer stage IV
     Dosage: 25 UNK, DAILY, STARTED 3 YEARS BEFORE
     Dates: start: 2020
  4. ELIQUIS [Concomitant]
     Active Substance: APIXABAN
     Indication: Blood disorder
     Dosage: STARTED 3 YEARS BEFORE
     Dates: start: 2020
  5. METOPROLOL [Concomitant]
     Active Substance: METOPROLOL
     Indication: Blood pressure abnormal
     Dosage: STARTED 7 YEARS BEFORE
     Dates: start: 2020
  6. ZOLPIDEM [Concomitant]
     Active Substance: ZOLPIDEM TARTRATE
     Dosage: 1 SPLEEP
     Dates: start: 2020
  7. OMEPRAZOLE [Concomitant]
     Active Substance: OMEPRAZOLE
     Dosage: STOMACH
     Dates: start: 2020
  8. IBUPROFEN [Concomitant]
     Active Substance: IBUPROFEN
     Indication: Back pain
     Dosage: UNK

REACTIONS (12)
  - Thrombosis [Unknown]
  - Deep vein thrombosis [Unknown]
  - Spinal stenosis [Recovered/Resolved]
  - Hernia [Recovered/Resolved]
  - Ulcer [Recovered/Resolved]
  - Diarrhoea [Recovered/Resolved]
  - Rash [Recovering/Resolving]
  - White blood cell count decreased [Recovering/Resolving]
  - Mean cell volume abnormal [Recovering/Resolving]
  - Arthropathy [Unknown]
  - Anaemia [Unknown]
  - Neoplasm progression [Unknown]

NARRATIVE: CASE EVENT DATE: 20231101
